FAERS Safety Report 6541699-3 (Version None)
Quarter: 2010Q1

REPORT INFORMATION
  Report Type: 
  Country: None (occurrence: None)
  Receive Date: 20100119
  Receipt Date: 20100113
  Transmission Date: 20100710
  Serious: Yes (Death, Other)
  Sender: FDA-Public Use
  Company Number: US-ASTRAZENECA-2010SE01666

PATIENT
  Age: 45 Year
  Sex: Female

DRUGS (1)
  1. SEROQUEL [Suspect]
     Indication: INSOMNIA
     Dosage: TOOK ONLY ONE TABLET
     Route: 048

REACTIONS (2)
  - AGITATION [None]
  - COMPLETED SUICIDE [None]
